FAERS Safety Report 8227613-3 (Version None)
Quarter: 2012Q1

REPORT INFORMATION
  Report Type: 
  Country: None (occurrence: None)
  Receive Date: 20120322
  Receipt Date: 20120308
  Transmission Date: 20120608
  Serious: Yes (Other)
  Sender: FDA-Public Use
  Company Number: FR-SANOFI-AVENTIS-2012SA015936

PATIENT
  Age: 81 Year
  Sex: Female

DRUGS (1)
  1. RIFATER [Suspect]
     Indication: TUBERCULOSIS
     Route: 065
     Dates: start: 20120202

REACTIONS (1)
  - NEUTROPENIA [None]
